FAERS Safety Report 5180376-0 (Version None)
Quarter: 2006Q4

REPORT INFORMATION
  Report Type: 
  Country: None (occurrence: None)
  Receive Date: 20060919
  Receipt Date: 20060718
  Transmission Date: 20070319
  Serious: No
  Sender: FDA-Public Use
  Company Number: 2006US001626

PATIENT
  Age: 68 Year
  Sex: Female

DRUGS (9)
  1. VESICARE [Suspect]
     Indication: HYPERTONIC BLADDER
     Dosage: SEE IMAGE
     Route: 048
     Dates: start: 20060101, end: 20060701
  2. VESICARE [Suspect]
     Indication: HYPERTONIC BLADDER
     Dosage: SEE IMAGE
     Route: 048
     Dates: start: 20060701
  3. ATENOLOL [Concomitant]
  4. AMITRIPTYLINE HCL [Concomitant]
  5. HYDROXYZINE HYDROCHLORIDE [Concomitant]
  6. NASONEX [Concomitant]
  7. PATANOL [Concomitant]
  8. ESTRACE [Concomitant]
  9. METROLOTION (METRONIDAZOLE) [Concomitant]

REACTIONS (1)
  - RASH MACULO-PAPULAR [None]
